FAERS Safety Report 12336134 (Version 1)
Quarter: 2016Q2

REPORT INFORMATION
  Report Type: Spontaneous
  Country: US (occurrence: US)
  Receive Date: 20160505
  Receipt Date: 20160505
  Transmission Date: 20160815
  Serious: No
  Sender: FDA-Public Use
  Company Number: US-PFIZER INC-2016201378

PATIENT
  Age: 85 Year
  Sex: Female

DRUGS (5)
  1. CORGARD [Suspect]
     Active Substance: NADOLOL
     Dosage: UNK
  2. LIPITOR [Suspect]
     Active Substance: ATORVASTATIN CALCIUM
     Dosage: UNK
  3. MEVACOR [Suspect]
     Active Substance: LOVASTATIN
     Dosage: UNK
  4. LOPID [Suspect]
     Active Substance: GEMFIBROZIL
     Dosage: UNK
  5. QUINIDINE SULFATE. [Suspect]
     Active Substance: QUINIDINE SULFATE
     Dosage: UNK

REACTIONS (1)
  - Drug hypersensitivity [Unknown]
